FAERS Safety Report 10757603 (Version 1)
Quarter: 2015Q1

REPORT INFORMATION
  Report Type: Spontaneous
  Country: US (occurrence: None)
  Receive Date: 20150202
  Receipt Date: 20150202
  Transmission Date: 20150721
  Serious: Yes (Other)
  Sender: FDA-Public Use
  Company Number: None

PATIENT
  Age: 41 Year

DRUGS (5)
  1. PROZAC [Suspect]
     Active Substance: FLUOXETINE HYDROCHLORIDE
     Indication: DEPRESSION
     Dosage: TAKEN BY MOUTH
     Dates: start: 20150121, end: 20150128
  2. EFFEXOR XR [Suspect]
     Active Substance: VENLAFAXINE HYDROCHLORIDE
     Indication: DEPRESSION
     Dosage: AT BEDTIME, TAKEN BY MOUTH
  3. PROZAC [Suspect]
     Active Substance: FLUOXETINE HYDROCHLORIDE
     Indication: ANXIETY
     Dosage: TAKEN BY MOUTH
     Dates: start: 20150121, end: 20150128
  4. EFFEXOR XR [Suspect]
     Active Substance: VENLAFAXINE HYDROCHLORIDE
     Indication: ANXIETY
     Dosage: AT BEDTIME, TAKEN BY MOUTH
  5. EFFEXOR XR [Suspect]
     Active Substance: VENLAFAXINE HYDROCHLORIDE
     Indication: PANIC ATTACK
     Dosage: AT BEDTIME, TAKEN BY MOUTH

REACTIONS (5)
  - Photophobia [None]
  - Depersonalisation [None]
  - Panic reaction [None]
  - Hyperacusis [None]
  - Anxiety [None]

NARRATIVE: CASE EVENT DATE: 20150128
